FAERS Safety Report 4289863-0 (Version None)
Quarter: 2004Q1

REPORT INFORMATION
  Report Type: 
  Country: None (occurrence: None)
  Receive Date: 20040209
  Receipt Date: 20030805
  Transmission Date: 20041129
  Serious: No
  Sender: FDA-Public Use
  Company Number: US-GLAXOSMITHKLINE-A0419747A

PATIENT
  Age: 61 Year
  Sex: Male

DRUGS (4)
  1. PAXIL [Suspect]
     Indication: ANXIETY
     Dosage: 10MG PER DAY
     Route: 048
     Dates: start: 19980101
  2. LIPITOR [Concomitant]
  3. DAPSONE [Concomitant]
  4. CELEBREX [Concomitant]

REACTIONS (2)
  - COELIAC DISEASE [None]
  - DERMATITIS HERPETIFORMIS [None]
